FAERS Safety Report 9916695 (Version 2)
Quarter: 2014Q1

REPORT INFORMATION
  Report Type: Spontaneous
  Country: GB (occurrence: GB)
  Receive Date: 20140221
  Receipt Date: 20140304
  Transmission Date: 20141002
  Serious: Yes (Life-Threatening)
  Sender: FDA-Public Use
  Company Number: GB-PFIZER INC-2014047051

PATIENT
  Age: 58 Year
  Sex: Male
  Weight: 91.63 kg

DRUGS (4)
  1. ATORVASTATIN [Suspect]
     Dosage: UNK
     Dates: start: 20131106
  2. LERCANIDIPINE HYDROCHLORIDE [Concomitant]
     Dosage: UNK
     Dates: start: 20130913, end: 20140131
  3. MAXITROL [Concomitant]
     Dosage: UNK
     Dates: start: 20131206, end: 20131207
  4. METFORMIN [Concomitant]
     Dosage: UNK
     Dates: start: 20130927, end: 20140131

REACTIONS (3)
  - Swelling face [Recovered/Resolved]
  - Tremor [Unknown]
  - Feeling hot [Unknown]
